FAERS Safety Report 6211858-8 (Version None)
Quarter: 2009Q2

REPORT INFORMATION
  Report Type: 
  Country: None (occurrence: None)
  Receive Date: 20090528
  Receipt Date: 20090528
  Transmission Date: 20091009
  Serious: Yes (Hospitalization)
  Sender: FDA-Public Use
  Company Number: WAES 0905FRA00050

PATIENT
  Age: 49 Year
  Sex: Female

DRUGS (4)
  1. CAP VORINOSTAT [Suspect]
     Indication: BREAST CANCER
     Dosage: 200 MG/DAILY PO
     Route: 048
     Dates: start: 20090429, end: 20090505
  2. VINORELBINE TARTRATE [Suspect]
     Indication: BREAST CANCER
     Dosage: IV
     Route: 042
     Dates: start: 20090505, end: 20090505
  3. BROMAZEPAM [Concomitant]
  4. ESOMEPRAZOLE MAGNESIUM [Concomitant]

REACTIONS (5)
  - APLASIA [None]
  - HAEMOGLOBIN DECREASED [None]
  - NEUTROPHIL COUNT DECREASED [None]
  - PLATELET COUNT DECREASED [None]
  - WHITE BLOOD CELL COUNT DECREASED [None]
